FAERS Safety Report 24119201 (Version 3)
Quarter: 2024Q3

REPORT INFORMATION
  Report Type: Spontaneous
  Country: MX (occurrence: MX)
  Receive Date: 20240722
  Receipt Date: 20240823
  Transmission Date: 20241017
  Serious: Yes (Hospitalization, Other)
  Sender: SERVIER
  Company Number: MX-SERVIER-S24008889

PATIENT

DRUGS (7)
  1. ONCASPAR [Suspect]
     Active Substance: PEGASPARGASE
     Indication: Acute lymphocytic leukaemia
     Dosage: 1470 IU
     Route: 030
  2. ONCASPAR [Suspect]
     Active Substance: PEGASPARGASE
     Dosage: 1470 IU
     Route: 030
     Dates: start: 20240615
  3. ONCASPAR [Suspect]
     Active Substance: PEGASPARGASE
     Dosage: 1470 IU
     Route: 030
     Dates: start: 20240701
  4. LEXAPRO [Concomitant]
     Active Substance: ESCITALOPRAM OXALATE
     Indication: Antidepressant therapy
     Dosage: 10 MG
     Route: 048
     Dates: start: 20240627
  5. OMEPRAZOLE [Concomitant]
     Active Substance: OMEPRAZOLE
     Indication: Prophylaxis
     Dosage: 40 MG
     Route: 042
     Dates: start: 20240614
  6. Riopan [Concomitant]
     Indication: Antacid therapy
     Dosage: 10 ML
     Route: 048
     Dates: start: 20240614
  7. KELEFUSIN [Concomitant]
     Indication: Product used for unknown indication
     Dosage: 20 MEQ
     Route: 042
     Dates: start: 20240623, end: 20240705

REACTIONS (7)
  - Testis cancer [Recovering/Resolving]
  - Cerebral venous sinus thrombosis [Unknown]
  - Hemiparesis [Recovering/Resolving]
  - Seizure [Recovering/Resolving]
  - Cerebrovascular disorder [Unknown]
  - Jugular vein thrombosis [Unknown]
  - Neuropathy peripheral [Unknown]

NARRATIVE: CASE EVENT DATE: 20240610
